FAERS Safety Report 6952405-2 (Version None)
Quarter: 2010Q3

REPORT INFORMATION
  Report Type: 
  Country: None (occurrence: None)
  Receive Date: 20100829
  Receipt Date: 20100429
  Transmission Date: 20110219
  Serious: No
  Sender: FDA-Public Use
  Company Number: US-ABBOTT-10P-163-0642322-00

PATIENT
  Sex: Female
  Weight: 118.04 kg

DRUGS (7)
  1. NIASPAN [Suspect]
     Indication: BLOOD CHOLESTEROL INCREASED
     Dates: start: 20100301
  2. LAMICTAL [Concomitant]
     Indication: CONVULSION
  3. TOPAMAX [Concomitant]
     Indication: CONVULSION
  4. FLEXERIL [Concomitant]
     Indication: NECK PAIN
  5. VICODIN [Concomitant]
     Indication: NECK PAIN
  6. ASPIRIN [Concomitant]
     Indication: PROPHYLAXIS
     Dosage: ON HOLD SINCE 27-APR-2010
  7. ASPIRIN [Concomitant]
     Indication: FLUSHING

REACTIONS (1)
  - FLUSHING [None]
